FAERS Safety Report 10084543 (Version 1)
Quarter: 2014Q2

REPORT INFORMATION
  Report Type: Spontaneous
  Country: US (occurrence: US)
  Receive Date: 20140417
  Receipt Date: 20140417
  Transmission Date: 20141212
  Serious: No
  Sender: FDA-Public Use
  Company Number: US-PFIZER INC-2014103987

PATIENT
  Age: 53 Year
  Sex: Female
  Weight: 73.47 kg

DRUGS (6)
  1. LYRICA [Suspect]
     Indication: FIBROMYALGIA
     Dosage: 75 MG, 3X/DAY
  2. LYRICA [Suspect]
     Indication: NEURALGIA
     Dosage: 100 MG, 3X/DAY
  3. LYRICA [Suspect]
     Dosage: 75 MG, 3X/DAY
  4. SOMA [Concomitant]
     Indication: MUSCLE SPASMS
     Dosage: 350 MG, 3X/DAY
  5. VITAMIN B12 [Concomitant]
     Dosage: UNK
  6. HYDROCODONE [Concomitant]
     Indication: NEURALGIA
     Dosage: 7.5 MG, 3X/DAY

REACTIONS (3)
  - Drug intolerance [Unknown]
  - Insomnia [Unknown]
  - Dizziness [Unknown]
